FAERS Safety Report 5836256-8 (Version None)
Quarter: 2008Q3

REPORT INFORMATION
  Report Type: 
  Country: None (occurrence: None)
  Receive Date: 20080807
  Receipt Date: 20080728
  Transmission Date: 20090109
  Serious: Yes (Other)
  Sender: FDA-Public Use
  Company Number: GB-JNJFOC-20080706419

PATIENT
  Sex: Female
  Weight: 56 kg

DRUGS (13)
  1. REMICADE [Suspect]
     Indication: RHEUMATOID ARTHRITIS
     Route: 042
  2. METHOTREXATE [Concomitant]
  3. PREDNISOLONE [Concomitant]
  4. ALENDRONATE SODIUM [Concomitant]
  5. ASPIRIN [Concomitant]
  6. ATENOLOL [Concomitant]
  7. CALCICHEW [Concomitant]
  8. CO-AMILOFRUSE [Concomitant]
  9. FOLIC ACID [Concomitant]
  10. HYDROXYCHLOROQUINE SULFATE [Concomitant]
  11. NIFEDIPINE [Concomitant]
  12. NIZATIDINE [Concomitant]
  13. SIMVASTATIN [Concomitant]

REACTIONS (3)
  - LUNG ADENOCARCINOMA [None]
  - METASTASES TO BONE [None]
  - METASTASES TO LIVER [None]
